FAERS Safety Report 19902582 (Version 1)
Quarter: 2021Q3

REPORT INFORMATION
  Report Type: Spontaneous
  Country: US (occurrence: US)
  Receive Date: 20210930
  Receipt Date: 20210930
  Transmission Date: 20211014
  Serious: No
  Sender: FDA-Public Use
  Company Number: US-ANIPHARMA-2021-US-011664

PATIENT
  Age: 14 Year
  Sex: Female
  Weight: 77.11 kg

DRUGS (1)
  1. ERYTHROMYCIN ETHYLSUCCINATE FOR ORAL SUSPENSION USP 35?DAY [Suspect]
     Active Substance: ERYTHROMYCIN ETHYLSUCCINATE
     Indication: INFECTION
     Route: 048
     Dates: start: 20210525, end: 20210527

REACTIONS (5)
  - Intentional product misuse [Recovered/Resolved]
  - Throat irritation [Recovered/Resolved]
  - Genital blister [Recovered/Resolved]
  - Product dose omission issue [Recovered/Resolved]
  - Dysuria [Recovered/Resolved]

NARRATIVE: CASE EVENT DATE: 20210525
